FAERS Safety Report 9527503 (Version 1)
Quarter: 2013Q3

REPORT INFORMATION
  Report Type: Spontaneous
  Country: US (occurrence: US)
  Receive Date: 20130917
  Receipt Date: 20130917
  Transmission Date: 20140515
  Serious: Yes (Other)
  Sender: FDA-Public Use
  Company Number: US-ASTRAZENECA-2013SE68430

PATIENT
  Age: 76 Year
  Sex: Male
  Weight: 83.9 kg

DRUGS (6)
  1. CRESTOR [Suspect]
     Indication: TRANSIENT ISCHAEMIC ATTACK
     Route: 048
     Dates: start: 2007, end: 2012
  2. AGGRANOX [Concomitant]
     Indication: TRANSIENT ISCHAEMIC ATTACK
     Dosage: 25 200 MG BID
     Route: 048
     Dates: start: 2007, end: 2012
  3. AGGRANOX [Concomitant]
     Indication: TRANSIENT ISCHAEMIC ATTACK
     Dosage: 25 200 MG OD
     Route: 048
     Dates: start: 2012
  4. ENALAPRIL [Concomitant]
     Indication: BLOOD PRESSURE ABNORMAL
     Route: 048
     Dates: start: 2007, end: 2012
  5. LEVOTHYROXINE [Concomitant]
     Indication: THYROID DISORDER
     Route: 048
     Dates: start: 2007, end: 2012
  6. ELAVIL [Concomitant]
     Indication: DEPRESSION
     Route: 048

REACTIONS (4)
  - Platelet count decreased [Not Recovered/Not Resolved]
  - Feeling abnormal [Recovered/Resolved]
  - Hypersomnia [Recovered/Resolved]
  - Drug effect increased [Recovered/Resolved]
